FAERS Safety Report 5735274-8 (Version None)
Quarter: 2008Q2

REPORT INFORMATION
  Report Type: 
  Country: None (occurrence: None)
  Receive Date: 20080512
  Receipt Date: 20080505
  Transmission Date: 20081010
  Serious: Yes (Hospitalization, Other)
  Sender: FDA-Public Use
  Company Number: US-JNJFOC-20080501106

PATIENT
  Sex: Male

DRUGS (4)
  1. RISPERDAL [Suspect]
     Route: 048
  2. RISPERDAL [Suspect]
     Indication: SCHIZOPHRENIA
     Route: 048
  3. ZYPREXA [Concomitant]
  4. ZYPREXA [Concomitant]
     Indication: SCHIZOPHRENIA

REACTIONS (2)
  - PERIORBITAL OEDEMA [None]
  - SCHIZOPHRENIA [None]
